FAERS Safety Report 4773065-5 (Version None)
Quarter: 2005Q3

REPORT INFORMATION
  Report Type: 
  Country: None (occurrence: None)
  Receive Date: 20050916
  Receipt Date: 20050819
  Transmission Date: 20060218
  Serious: Yes (Hospitalization, Other)
  Sender: FDA-Public Use
  Company Number: US014426

PATIENT
  Age: 48 Year
  Sex: Female
  Weight: 90.7194 kg

DRUGS (2)
  1. ACTIQ [Suspect]
     Indication: BACK PAIN
     Dosage: 1200 UG TID BUCCAL
     Route: 002
     Dates: start: 20020101, end: 20050501
  2. DURAGESIC-100 [Suspect]
     Indication: BACK PAIN
     Dosage: 75 UG Q72HR TRANSDERMAL
     Route: 062
     Dates: end: 20050501

REACTIONS (6)
  - COGNITIVE DISORDER [None]
  - DEPENDENCE [None]
  - DEPRESSION SUICIDAL [None]
  - DISTURBANCE IN ATTENTION [None]
  - DRUG ABUSER [None]
  - MEMORY IMPAIRMENT [None]
